FAERS Safety Report 8365282-2 (Version None)
Quarter: 2012Q2

REPORT INFORMATION
  Report Type: 
  Country: None (occurrence: None)
  Receive Date: 20120516
  Receipt Date: 20120510
  Transmission Date: 20120825
  Serious: Yes (Life-Threatening)
  Sender: FDA-Public Use
  Company Number: JP-PFIZER INC-2012061484

PATIENT
  Age: 58 Year
  Sex: Male
  Weight: 62.5 kg

DRUGS (13)
  1. VANCOMYCIN [Concomitant]
     Indication: INFECTION PROPHYLAXIS
     Dosage: 0.5 G, WEEKLY
     Route: 042
     Dates: end: 20110915
  2. PRINK [Concomitant]
     Indication: PERIPHERAL ARTERIAL OCCLUSIVE DISEASE
     Dosage: 5 UG, ALTERNATE DAY
     Route: 042
     Dates: start: 20110826, end: 20110913
  3. WARFARIN [Concomitant]
     Indication: HEART VALVE REPLACEMENT
     Dosage: 1 MG, 1X/DAY
     Route: 048
     Dates: end: 20110916
  4. LANSOPRAZOLE [Concomitant]
     Indication: GASTRITIS
     Dosage: UNK
     Route: 048
     Dates: end: 20110916
  5. LEVOTHYROXINE SODIUM [Concomitant]
     Indication: HYPOTHYROIDISM
     Dosage: 25 UG, 1X/DAY
     Route: 048
     Dates: end: 20110916
  6. SILDENAFIL CITRATE [Suspect]
     Indication: MITRAL VALVE STENOSIS
     Dosage: 60 MG/DAY
     Route: 048
     Dates: start: 20110826, end: 20110831
  7. ASPIRIN [Concomitant]
     Indication: ANGINA PECTORIS
     Dosage: 100 MG, 1X/DAY
     Route: 048
     Dates: end: 20110916
  8. LOXONIN [Concomitant]
     Indication: PAIN IN EXTREMITY
     Dosage: 60 MG, 3X/DAY
     Route: 048
     Dates: end: 20110916
  9. LANTUS [Concomitant]
     Indication: DIABETES MELLITUS
     Dosage: 16 UNITS, 1X/DAY
     Route: 058
     Dates: end: 20110918
  10. SILDENAFIL CITRATE [Suspect]
     Dosage: 20 MG, 2X/DAY
     Route: 048
     Dates: start: 20110901, end: 20110909
  11. APIDRA [Concomitant]
     Indication: DIABETES MELLITUS
     Dosage: 4 UNITS, 3X/DAY
     Route: 058
     Dates: end: 20110918
  12. IMIPENEM AND CILASTATIN SODIUM [Concomitant]
     Indication: INFECTION PROPHYLAXIS
     Dosage: 0.5 G, 1X/DAY
     Route: 042
     Dates: end: 20110915
  13. EPOGIN [Concomitant]
     Indication: NEPHROGENIC ANAEMIA
     Dosage: 9000 UNITS, WEEKLY
     Route: 058
     Dates: end: 20110909

REACTIONS (1)
  - HYPOTENSION [None]
